FAERS Safety Report 9844752 (Version 1)
Quarter: 2014Q1

REPORT INFORMATION
  Report Type: Spontaneous
  Country: CA (occurrence: None)
  Receive Date: 20140122
  Receipt Date: 20140122
  Transmission Date: 20141002
  Serious: Yes (Other)
  Sender: FDA-Public Use
  Company Number: 2014AP000203

PATIENT
  Age: 33 Year
  Sex: Female

DRUGS (6)
  1. LEVETIRACETAM (LEVETIRACETAM) [Suspect]
     Indication: GRAND MAL CONVULSION
  2. PHENYTOIN (PHENYTOIN) [Concomitant]
  3. TOPIRAMATE (TOPIRAMATE) [Concomitant]
  4. LAMOTRIGINE  (LAMOTRIGINE) [Concomitant]
  5. CARBAMAZEPINE (CARBAMAZEPINE) [Concomitant]
  6. VALPROIC ACID (VALPROIC ACID) [Concomitant]

REACTIONS (2)
  - Rash maculo-papular [None]
  - Angioedema [None]
